FAERS Safety Report 26016106 (Version 1)
Quarter: 2025Q4

REPORT INFORMATION
  Report Type: Spontaneous
  Country: US (occurrence: US)
  Receive Date: 20251110
  Receipt Date: 20251110
  Transmission Date: 20260117
  Serious: No
  Sender: BEIGENE
  Company Number: US-BEIGENE-BGN-2025-017745

PATIENT
  Age: 59 Year

DRUGS (1)
  1. BRUKINSA [Suspect]
     Active Substance: ZANUBRUTINIB
     Indication: Chronic lymphocytic leukaemia
     Dosage: 320 MILLIGRAM, DAILY

REACTIONS (1)
  - Scrotal oedema [Recovering/Resolving]
